FAERS Safety Report 8546647-2 (Version None)
Quarter: 2012Q3

REPORT INFORMATION
  Report Type: 
  Country: None (occurrence: None)
  Receive Date: 20120727
  Receipt Date: 20120717
  Transmission Date: 20120928
  Serious: Yes (Hospitalization, Other)
  Sender: FDA-Public Use
  Company Number: US-MSD-1203USA01478

PATIENT

DRUGS (6)
  1. ACTONEL [Concomitant]
     Indication: OSTEOPOROSIS
     Dosage: 5 MG, QD
     Dates: start: 20011010
  2. CALCIUM (UNSPECIFIED) [Concomitant]
     Indication: OSTEOPOROSIS
     Dosage: 1200 MG, UNK
  3. FOSAMAX [Suspect]
     Indication: OSTEOPOROSIS
     Dosage: 70 MG, QW
     Route: 048
     Dates: start: 19990101, end: 20110301
  4. IBUPROFEN [Concomitant]
     Indication: ARTHRALGIA
  5. VITAMIN D (UNSPECIFIED) [Concomitant]
     Indication: OSTEOPOROSIS
     Dosage: 1500 MG, UNK
  6. ACTONEL [Concomitant]
     Dosage: 30 MG, UNK

REACTIONS (32)
  - CERVIX CARCINOMA [None]
  - DENTAL CARIES [None]
  - BREAST MASS [None]
  - CARDIAC MURMUR [None]
  - SLEEP DISORDER [None]
  - RHINITIS ALLERGIC [None]
  - RAYNAUD'S PHENOMENON [None]
  - OSTEONECROSIS OF JAW [None]
  - RADIATION INJURY [None]
  - DIARRHOEA [None]
  - BREAST CANCER IN SITU [None]
  - ALANINE AMINOTRANSFERASE INCREASED [None]
  - CHRONIC OBSTRUCTIVE PULMONARY DISEASE [None]
  - MONOCLONAL GAMMOPATHY [None]
  - FATIGUE [None]
  - DYSPEPSIA [None]
  - GASTROINTESTINAL DISORDER [None]
  - HYPOCALCAEMIA [None]
  - TOOTH DISORDER [None]
  - RENAL IMPAIRMENT [None]
  - HEPATITIS A [None]
  - HYSTERECTOMY [None]
  - HYPOVITAMINOSIS [None]
  - MALABSORPTION [None]
  - SCOLIOSIS [None]
  - BREAST CALCIFICATIONS [None]
  - OOPHORECTOMY [None]
  - HYPERTENSION [None]
  - ADVERSE EVENT [None]
  - IRON DEFICIENCY ANAEMIA [None]
  - ANAEMIA VITAMIN B12 DEFICIENCY [None]
  - TOOTH FRACTURE [None]
